FAERS Safety Report 6261258-X (Version None)
Quarter: 2009Q3

REPORT INFORMATION
  Report Type: 
  Country: None (occurrence: None)
  Receive Date: 20090709
  Receipt Date: 20090310
  Transmission Date: 20100115
  Serious: No
  Sender: FDA-Public Use
  Company Number: US-KINGPHARMUSA00001-K200900265

PATIENT
  Sex: Female

DRUGS (2)
  1. LEVOXYL [Suspect]
     Dosage: 125 MCG, QOD
     Route: 048
  2. LEVOXYL [Suspect]
     Dosage: 112 MCG, QOD
     Route: 048

REACTIONS (4)
  - ANXIETY [None]
  - HEART RATE INCREASED [None]
  - WEIGHT DECREASED [None]
  - WEIGHT INCREASED [None]
